FAERS Safety Report 4664274-4 (Version None)
Quarter: 2005Q2

REPORT INFORMATION
  Report Type: 
  Country: None (occurrence: None)
  Receive Date: 20050516
  Receipt Date: 20050516
  Transmission Date: 20051028
  Serious: Yes (Other)
  Sender: FDA-Public Use
  Company Number: None

PATIENT
  Age: 45 Year
  Sex: Male
  Weight: 105.6881 kg

DRUGS (2)
  1. NEURONTIN [Suspect]
     Indication: MUSCLE SPASMS
     Dosage: 300 MG ONE AM , TWO N , TWO HS
     Dates: start: 20040301, end: 20041123
  2. NEURONTIN [Suspect]
     Indication: PAIN
     Dosage: 300 MG ONE AM , TWO N , TWO HS
     Dates: start: 20040301, end: 20041123

REACTIONS (1)
  - PHARMACEUTICAL PRODUCT COMPLAINT [None]
